FAERS Safety Report 5234928-X (Version None)
Quarter: 2007Q1

REPORT INFORMATION
  Report Type: 
  Country: None (occurrence: None)
  Receive Date: 20070209
  Receipt Date: 20070129
  Transmission Date: 20070707
  Serious: Yes (Other)
  Sender: FDA-Public Use
  Company Number: US-PFIZER INC-2007009174

PATIENT
  Sex: Male
  Weight: 86.6 kg

DRUGS (3)
  1. LYRICA [Suspect]
     Indication: PAIN IN EXTREMITY
  2. CLONAZEPAM [Suspect]
     Indication: DEPRESSION
  3. AMBIEN [Suspect]
     Indication: SLEEP DISORDER

REACTIONS (4)
  - DISTURBANCE IN ATTENTION [None]
  - MENTAL IMPAIRMENT [None]
  - SOMNOLENCE [None]
  - WEIGHT INCREASED [None]
